FAERS Safety Report 21949324 (Version 1)
Quarter: 2023Q1

REPORT INFORMATION
  Report Type: Spontaneous
  Country: US (occurrence: None)
  Receive Date: 20230202
  Receipt Date: 20230202
  Transmission Date: 20230417
  Serious: Yes (Hospitalization)
  Sender: FDA-Public Use
  Company Number: None

PATIENT
  Sex: Female
  Weight: 82.1 kg

DRUGS (16)
  1. CAPECITABINE [Suspect]
     Active Substance: CAPECITABINE
     Indication: Breast cancer female
     Dosage: 2000MG TWICE DAILY ORAL - 14 DAYS ON, 7 D OFF
     Route: 048
  2. ACETAMINOPHEN [Concomitant]
  3. ALBUTEROL [Concomitant]
  4. BACLOFEN [Concomitant]
  5. BUDESONIDE [Concomitant]
  6. LANTUS [Concomitant]
     Active Substance: INSULIN GLARGINE
  7. LIDOCAINE [Concomitant]
  8. LINZESS [Concomitant]
  9. LOPERAMIDE [Concomitant]
  10. MECLIZINE [Concomitant]
  11. NALOXONE [Concomitant]
  12. OLANZAPINE [Concomitant]
  13. OXYBUTYNIN [Concomitant]
  14. PANTOPRAZOLE [Concomitant]
  15. TRIAMCINOLONE [Concomitant]
  16. VENLAFAXINE [Concomitant]

REACTIONS (2)
  - Hospitalisation [None]
  - Therapy interrupted [None]
